FAERS Safety Report 8827616 (Version 1)
Quarter: 2012Q4

REPORT INFORMATION
  Report Type: 
  Country: CA (occurrence: CA)
  Receive Date: 20121008
  Receipt Date: 20121008
  Transmission Date: 20130627
  Serious: Yes (Other)
  Sender: FDA-Public Use
  Company Number: CA-MPIJNJ-2012-06776

PATIENT

DRUGS (3)
  1. VELCADE [Suspect]
     Indication: MULTIPLE MYELOMA
     Dosage: UNK
     Dates: start: 20120120, end: 20120511
  2. LENALIDOMIDE [Concomitant]
     Indication: MULTIPLE MYELOMA
     Dosage: 15 mg, UNK
     Route: 048
     Dates: start: 20110112, end: 20120113
  3. DEXAMETHASONE [Concomitant]
     Indication: MULTIPLE MYELOMA
     Dosage: UNK
     Dates: start: 20110112, end: 20120113

REACTIONS (1)
  - Squamous cell carcinoma [Recovered/Resolved]
